FAERS Safety Report 19877689 (Version 1)
Quarter: 2021Q3

REPORT INFORMATION
  Report Type: Spontaneous
  Country: CA (occurrence: CA)
  Receive Date: 20210924
  Receipt Date: 20210924
  Transmission Date: 20211014
  Serious: Yes (Hospitalization)
  Sender: FDA-Public Use
  Company Number: CA-ROCHE-2916261

PATIENT
  Age: 71 Year
  Sex: Female

DRUGS (22)
  1. APIXABAN [Concomitant]
     Active Substance: APIXABAN
  2. ATORVASTATIN [Concomitant]
     Active Substance: ATORVASTATIN
  3. AZATHIOPRINE. [Concomitant]
     Active Substance: AZATHIOPRINE
  4. LATANOPROST. [Concomitant]
     Active Substance: LATANOPROST
  5. OLMESARTAN [Concomitant]
     Active Substance: OLMESARTAN
  6. OLMETEC [Concomitant]
     Active Substance: OLMESARTAN MEDOXOMIL
  7. RISEDRONATE [Concomitant]
     Active Substance: RISEDRONATE SODIUM
  8. BENADRYL [Concomitant]
     Active Substance: DIPHENHYDRAMINE HYDROCHLORIDE
  9. SILVER SULFADIAZINE. [Concomitant]
     Active Substance: SILVER SULFADIAZINE
  10. AMLODIPINE [Concomitant]
     Active Substance: AMLODIPINE BESYLATE
  11. CLOBETASOL [Concomitant]
     Active Substance: CLOBETASOL
  12. FLECAINIDE [Concomitant]
     Active Substance: FLECAINIDE
  13. RITUXIMAB. [Suspect]
     Active Substance: RITUXIMAB
     Indication: PEMPHIGOID
     Route: 042
  14. DILTIAZEM. [Concomitant]
     Active Substance: DILTIAZEM
  15. IMOVANE [Concomitant]
     Active Substance: ZOPICLONE
  16. PREDNISONE. [Concomitant]
     Active Substance: PREDNISONE
  17. MYCOPHENOLATE SODIUM [Concomitant]
     Active Substance: MYCOPHENOLATE SODIUM
  18. METHYLPREDNISOLONE SODIUM SUCCINATE. [Concomitant]
     Active Substance: METHYLPREDNISOLONE SODIUM SUCCINATE
  19. METOPROLOL. [Concomitant]
     Active Substance: METOPROLOL
  20. OMEPRAZOLE. [Concomitant]
     Active Substance: OMEPRAZOLE
  21. SPIRONOLACTONE. [Concomitant]
     Active Substance: SPIRONOLACTONE
  22. TYLENOL [Concomitant]
     Active Substance: ACETAMINOPHEN
     Route: 048

REACTIONS (11)
  - Blood pressure increased [Recovered/Resolved]
  - Headache [Recovered/Resolved]
  - Intentional product use issue [Unknown]
  - Blood pressure fluctuation [Recovered/Resolved]
  - Respiratory rate increased [Recovered/Resolved]
  - Heart rate increased [Recovered/Resolved]
  - Intraocular pressure test [Recovered/Resolved]
  - Off label use [Unknown]
  - Atrial fibrillation [Recovered/Resolved]
  - Blood pressure systolic increased [Recovered/Resolved]
  - Oxygen saturation decreased [Recovered/Resolved]
